FAERS Safety Report 5966575-6 (Version None)
Quarter: 2008Q4

REPORT INFORMATION
  Report Type: 
  Country: None (occurrence: None)
  Receive Date: 20081125
  Receipt Date: 20080930
  Transmission Date: 20090506
  Serious: No
  Sender: FDA-Public Use
  Company Number: US-AMGEN-KDL310041

PATIENT
  Sex: Female
  Weight: 52.2 kg

DRUGS (3)
  1. ENBREL [Suspect]
     Indication: DRUG USE FOR UNKNOWN INDICATION
     Route: 058
     Dates: start: 20080826
  2. LISINOPRIL [Concomitant]
  3. AMLODIPINE [Concomitant]

REACTIONS (3)
  - DYSGEUSIA [None]
  - JOINT SWELLING [None]
  - OEDEMA PERIPHERAL [None]
